FAERS Safety Report 19433392 (Version 1)
Quarter: 2021Q2

REPORT INFORMATION
  Report Type: Spontaneous
  Country: US (occurrence: US)
  Receive Date: 20210617
  Receipt Date: 20210617
  Transmission Date: 20210717
  Serious: Yes (Other)
  Sender: FDA-Public Use
  Company Number: US-PFIZER INC-2021664409

PATIENT
  Age: 69 Year
  Sex: Male
  Weight: 106.12 kg

DRUGS (11)
  1. KOMBIGLYZE XR [METFORMIN;SAXAGLIPTIN] [Concomitant]
     Dosage: UNK, (5 MG ? 1000 MG TBMP 24 HR)
  2. LISINOPRIL. [Concomitant]
     Active Substance: LISINOPRIL
     Dosage: 10 MG
  3. XELJANZ [Suspect]
     Active Substance: TOFACITINIB CITRATE
     Indication: COLITIS ULCERATIVE
     Dosage: 10 MG, 2X/DAY
     Route: 048
     Dates: start: 202006
  4. MERCAPTOPURINE. [Concomitant]
     Active Substance: MERCAPTOPURINE
     Dosage: 50 MG
  5. TAMSULOSIN HCL [Concomitant]
     Active Substance: TAMSULOSIN HYDROCHLORIDE
     Dosage: 0.4 MG
  6. LIALDA [Concomitant]
     Active Substance: MESALAMINE
     Dosage: 1.2 G
  7. BUSPIRONE HCL [Concomitant]
     Active Substance: BUSPIRONE HYDROCHLORIDE
     Dosage: 15 MG
  8. ESCITALOPRAM OXALATE. [Concomitant]
     Active Substance: ESCITALOPRAM OXALATE
     Dosage: 20 MG
  9. MESALAMINE. [Concomitant]
     Active Substance: MESALAMINE
     Dosage: UNK, (4 G/60 ML ENEMA)
  10. METRONIDAZOLE. [Concomitant]
     Active Substance: METRONIDAZOLE
     Dosage: 500 MG
  11. FYCOMPA [Concomitant]
     Active Substance: PERAMPANEL
     Dosage: 8 MG

REACTIONS (2)
  - Rectal haemorrhage [Not Recovered/Not Resolved]
  - Therapeutic product effect incomplete [Unknown]
